FAERS Safety Report 10612947 (Version 1)
Quarter: 2014Q4

REPORT INFORMATION
  Report Type: Spontaneous
  Country: US (occurrence: US)
  Receive Date: 20141127
  Receipt Date: 20141127
  Transmission Date: 20150529
  Serious: No
  Sender: FDA-Public Use
  Company Number: US-009507513-1411USA011997

PATIENT
  Sex: Female
  Weight: 61.22 kg

DRUGS (3)
  1. IMPLANON [Suspect]
     Active Substance: ETONOGESTREL
     Indication: CONTRACEPTION
     Dosage: 1 IMPLANT/ 3 YEARS, LEFT ARM
     Route: 059
     Dates: start: 20111018
  2. IMPLANON [Suspect]
     Active Substance: ETONOGESTREL
     Indication: NEOPLASM
  3. LEVETIRACETAM. [Concomitant]
     Active Substance: LEVETIRACETAM
     Dosage: TWICE A DAY, 500 MGS

REACTIONS (6)
  - Implant site bruising [Unknown]
  - Vaginal haemorrhage [Unknown]
  - Therapeutic response unexpected [Unknown]
  - Amenorrhoea [Unknown]
  - Menstrual disorder [Unknown]
  - Incorrect drug administration duration [Unknown]

NARRATIVE: CASE EVENT DATE: 20111018
